FAERS Safety Report 6643786-8 (Version None)
Quarter: 2010Q1

REPORT INFORMATION
  Report Type: 
  Country: None (occurrence: None)
  Receive Date: 20100322
  Receipt Date: 20100311
  Transmission Date: 20100710
  Serious: Yes (Other)
  Sender: FDA-Public Use
  Company Number: FR-JNJFOC-20100304935

PATIENT
  Age: 32 Year
  Sex: Female

DRUGS (6)
  1. DITROPAN [Suspect]
     Indication: SUICIDE ATTEMPT
     Route: 048
  2. DITROPAN [Suspect]
     Indication: DRUG USE FOR UNKNOWN INDICATION
     Route: 048
  3. TEMESTA [Suspect]
     Indication: SUICIDE ATTEMPT
     Route: 048
  4. TEMESTA [Suspect]
     Indication: DRUG USE FOR UNKNOWN INDICATION
     Route: 048
  5. BACLOFEN [Suspect]
     Indication: SUICIDE ATTEMPT
     Route: 048
  6. BACLOFEN [Suspect]
     Indication: INTENTIONAL OVERDOSE
     Route: 048

REACTIONS (4)
  - COMA [None]
  - MULTIPLE DRUG OVERDOSE INTENTIONAL [None]
  - MYDRIASIS [None]
  - SUICIDE ATTEMPT [None]
